FAERS Safety Report 4448921-8 (Version None)
Quarter: 2004Q3

REPORT INFORMATION
  Report Type: 
  Country: None (occurrence: None)
  Receive Date: 20040909
  Receipt Date: 20040827
  Transmission Date: 20050211
  Serious: Yes (Other)
  Sender: FDA-Public Use
  Company Number: 2004-113903-NL

PATIENT
  Age: 38 Year
  Sex: Female
  Weight: 65 kg

DRUGS (1)
  1. NUVARING [Suspect]
     Indication: CONTRACEPTION
     Dates: start: 20030601, end: 20030701

REACTIONS (3)
  - MYALGIA [None]
  - THERAPY NON-RESPONDER [None]
  - TOXIC SHOCK SYNDROME STAPHYLOCOCCAL [None]
